FAERS Safety Report 9231709 (Version 1)
Quarter: 2013Q2

REPORT INFORMATION
  Report Type: Spontaneous
  Country: IT (occurrence: IT)
  Receive Date: 20130415
  Receipt Date: 20130415
  Transmission Date: 20140414
  Serious: Yes (Life-Threatening)
  Sender: FDA-Public Use
  Company Number: IT-TEVA-397280ISR

PATIENT
  Age: 29 Year
  Sex: Female

DRUGS (3)
  1. LORAZEPAM [Suspect]
     Dosage: 1 DOSAGE FORMS DAILY;
     Route: 048
     Dates: start: 20130106, end: 20130106
  2. DEPAKIN [Suspect]
     Dosage: 100 DOSAGE FORMS DAILY;
     Route: 048
     Dates: start: 20130106, end: 20130106
  3. SEROQUEL [Suspect]
     Dosage: 40 DOSAGE FORMS DAILY;
     Route: 048
     Dates: start: 20130106, end: 20130106

REACTIONS (3)
  - Sopor [Unknown]
  - Toxicity to various agents [Unknown]
  - Drug abuse [Unknown]
